FAERS Safety Report 6613404-3 (Version None)
Quarter: 2010Q1

REPORT INFORMATION
  Report Type: 
  Country: None (occurrence: None)
  Receive Date: 20100224
  Receipt Date: 20090702
  Transmission Date: 20100710
  Serious: No
  Sender: FDA-Public Use
  Company Number: 2009-00559

PATIENT
  Age: 62 Year
  Sex: Female
  Weight: 63.5036 kg

DRUGS (4)
  1. ZICAM COLD REMEDY GEL SWABS [Suspect]
     Dosage: BID - 4 DAYS
     Dates: start: 20081101
  2. ZICAM COLD REMEDY RAPIDMELTS [Suspect]
     Dosage: BID - 4 DAYS
     Dates: start: 20081101
  3. ASPIRIN [Concomitant]
  4. VITAMINS C + D [Concomitant]

REACTIONS (2)
  - AGEUSIA [None]
  - ANOSMIA [None]
